FAERS Safety Report 20481107 (Version 4)
Quarter: 2022Q1

REPORT INFORMATION
  Report Type: Report from Study
  Country: CO (occurrence: CO)
  Receive Date: 20220216
  Receipt Date: 20220307
  Transmission Date: 20220423
  Serious: Yes (Hospitalization, Other)
  Sender: FDA-Public Use
  Company Number: CO-ABBVIE-22K-036-4271358-00

PATIENT
  Age: 55 Year
  Sex: Female

DRUGS (2)
  1. VENCLEXTA [Suspect]
     Active Substance: VENETOCLAX
     Indication: Chronic lymphocytic leukaemia
     Dosage: FROM MONDAY TO FRIDAY
     Route: 048
     Dates: start: 20210719, end: 20220204
  2. VENCLEXTA [Suspect]
     Active Substance: VENETOCLAX
     Dosage: FROM MONDAY TO FRIDAY
     Route: 048

REACTIONS (7)
  - Choking [Recovered/Resolved]
  - Pneumonia [Not Recovered/Not Resolved]
  - Pneumonitis [Unknown]
  - Suspected COVID-19 [Not Recovered/Not Resolved]
  - Influenza [Not Recovered/Not Resolved]
  - Abdominal discomfort [Recovered/Resolved]
  - Malaise [Recovered/Resolved]

NARRATIVE: CASE EVENT DATE: 20220201
